FAERS Safety Report 12372581 (Version 2)
Quarter: 2016Q2

REPORT INFORMATION
  Report Type: Spontaneous
  Country: US (occurrence: US)
  Receive Date: 20160516
  Receipt Date: 20160620
  Transmission Date: 20160815
  Serious: Yes (Other)
  Sender: FDA-Public Use
  Company Number: US-PFIZER INC-2016256901

PATIENT
  Age: 6 Decade
  Sex: Female

DRUGS (2)
  1. HALOTHANE. [Concomitant]
     Active Substance: HALOTHANE
     Indication: ANAESTHESIA
     Dosage: UNK
  2. LIDOCAINE HCL [Suspect]
     Active Substance: LIDOCAINE HYDROCHLORIDE
     Indication: FEELING OF RELAXATION
     Dosage: UNK (2% LIDOCAINE 5-15 ML)

REACTIONS (2)
  - Drug-induced liver injury [Recovered/Resolved]
  - Hepatic failure [Recovered/Resolved]
